FAERS Safety Report 5917591-1 (Version None)
Quarter: 2008Q4

REPORT INFORMATION
  Report Type: 
  Country: None (occurrence: None)
  Receive Date: 20081009
  Receipt Date: 20080924
  Transmission Date: 20090506
  Serious: Yes (Hospitalization)
  Sender: FDA-Public Use
  Company Number: 2008002291

PATIENT
  Age: 64 Year
  Sex: Male
  Weight: 61 kg

DRUGS (9)
  1. ERLOTINIB (ERLOTINIB) (TABLET) (ERLOTINIB) [Suspect]
     Indication: NON-SMALL CELL LUNG CANCER
     Dosage: (150 MG,QD), ORAL
     Route: 048
     Dates: start: 20080718, end: 20080818
  2. SUNITINIB/PLACEBO [Suspect]
     Indication: NON-SMALL CELL LUNG CANCER
     Dosage: (37.5 MG, QD), ORAL
     Route: 048
     Dates: start: 20080718, end: 20080818
  3. VOLTAREN [Concomitant]
  4. ENALAPRIL MALEATE [Concomitant]
  5. OMEPRAZOLE [Concomitant]
  6. MEGESTROL ACETATE [Concomitant]
  7. LORAZEPAM [Concomitant]
  8. FENTANYL-100 [Concomitant]
  9. METFORMIN HCL [Concomitant]

REACTIONS (1)
  - ATAXIA [None]
